FAERS Safety Report 9414390 (Version 1)
Quarter: 2013Q3

REPORT INFORMATION
  Report Type: Spontaneous
  Country: CA (occurrence: CA)
  Receive Date: 20130723
  Receipt Date: 20130723
  Transmission Date: 20140515
  Serious: Yes (Hospitalization)
  Sender: FDA-Public Use
  Company Number: CA-GLAXOSMITHKLINE-A1034011A

PATIENT
  Sex: Female
  Weight: 63.6 kg

DRUGS (2)
  1. ADVAIR [Suspect]
     Indication: DYSPNOEA
     Route: 055
     Dates: start: 2012
  2. ADVAIR [Suspect]
     Indication: DYSPNOEA
     Dosage: 1PUFF PER DAY
     Route: 055
     Dates: start: 201307

REACTIONS (2)
  - Coronary artery bypass [Unknown]
  - Off label use [Unknown]
